FAERS Safety Report 23520658 (Version 1)
Quarter: 2024Q1

REPORT INFORMATION
  Report Type: 
  Country: None (occurrence: None)
  Receive Date: 20240214
  Receipt Date: 20240214
  Transmission Date: 20240410
  Serious: No
  Sender: FDA-Public Use
  Company Number: AU-ROCHE-3491873

PATIENT
  Weight: 84.8 kg

DRUGS (8)
  1. RITUXIMAB [Suspect]
     Active Substance: RITUXIMAB
     Dates: start: 20231221
  2. EPCORITAMAB [Suspect]
     Active Substance: EPCORITAMAB
     Dates: start: 20231221, end: 20231221
  3. EPCORITAMAB [Suspect]
     Active Substance: EPCORITAMAB
     Dates: start: 20231228, end: 20231228
  4. EPCORITAMAB [Suspect]
     Active Substance: EPCORITAMAB
     Dates: start: 20240104
  5. CYCLOPHOSPHAMIDE [Suspect]
     Active Substance: CYCLOPHOSPHAMIDE
     Dates: start: 20231221
  6. DOXORUBICIN [Suspect]
     Active Substance: DOXORUBICIN
     Dates: start: 20231221
  7. PREDNISONE [Suspect]
     Active Substance: PREDNISONE
     Dosage: DAILY C1-6, DAY 1-5,
     Dates: start: 20231221
  8. VINCRISTINE [Suspect]
     Active Substance: VINCRISTINE
     Dates: start: 20231221

REACTIONS (1)
  - Cytokine release syndrome [None]

NARRATIVE: CASE EVENT DATE: 20240104
